FAERS Safety Report 6194325-X (Version None)
Quarter: 2009Q2

REPORT INFORMATION
  Report Type: 
  Country: None (occurrence: None)
  Receive Date: 20090519
  Receipt Date: 20090508
  Transmission Date: 20091009
  Serious: Yes (Death, Other)
  Sender: FDA-Public Use
  Company Number: US-RANBAXY-2009US-20900

PATIENT

DRUGS (3)
  1. ISOPTIN SR [Suspect]
     Indication: DRUG USE FOR UNKNOWN INDICATION
     Dosage: UNK, UNK
     Route: 048
  2. METFORMIN HYDROCHLORIDE [Suspect]
     Indication: DRUG USE FOR UNKNOWN INDICATION
     Route: 048
  3. SERTRALINE HCL [Suspect]
     Indication: DRUG USE FOR UNKNOWN INDICATION
     Route: 048

REACTIONS (10)
  - BLOOD CREATININE INCREASED [None]
  - BLOOD POTASSIUM DECREASED [None]
  - BLOOD SODIUM DECREASED [None]
  - BRADYCARDIA [None]
  - COMPLETED SUICIDE [None]
  - GASTROINTESTINAL SOUNDS ABNORMAL [None]
  - HYPOGLYCAEMIA [None]
  - HYPOTENSION [None]
  - PERIPHERAL COLDNESS [None]
  - UNRESPONSIVE TO STIMULI [None]
